FAERS Safety Report 13455689 (Version 1)
Quarter: 2017Q2

REPORT INFORMATION
  Report Type: Spontaneous
  Country: US (occurrence: US)
  Receive Date: 20170419
  Receipt Date: 20170419
  Transmission Date: 20170830
  Serious: No
  Sender: FDA-Public Use
  Company Number: None

PATIENT

DRUGS (2)
  1. SPIRONOLACTONE. [Suspect]
     Active Substance: SPIRONOLACTONE
  2. AMOXICILLIN. [Suspect]
     Active Substance: AMOXICILLIN

REACTIONS (2)
  - Drug dispensing error [None]
  - Product colour issue [None]

NARRATIVE: CASE EVENT DATE: 2017
